FAERS Safety Report 19100458 (Version 1)
Quarter: 2021Q2

REPORT INFORMATION
  Report Type: Spontaneous
  Country: FR (occurrence: FR)
  Receive Date: 20210407
  Receipt Date: 20210407
  Transmission Date: 20210717
  Serious: Yes (Hospitalization, Other)
  Sender: FDA-Public Use
  Company Number: FR-LUPIN PHARMACEUTICALS INC.-2021-04295

PATIENT
  Age: 82 Year
  Sex: Female

DRUGS (6)
  1. OSIMERTINIB. [Concomitant]
     Active Substance: OSIMERTINIB
     Indication: LUNG ADENOCARCINOMA
     Dosage: UNK
     Route: 065
     Dates: start: 2020
  2. GEFITINIB. [Suspect]
     Active Substance: GEFITINIB
     Indication: LUNG ADENOCARCINOMA
     Dosage: UNK
     Route: 065
     Dates: start: 2020
  3. BETAMETHASONE. [Suspect]
     Active Substance: BETAMETHASONE
     Indication: PNEUMONITIS
     Dosage: 6 MILLIGRAM
     Route: 065
     Dates: start: 2020
  4. BETAMETHASONE. [Suspect]
     Active Substance: BETAMETHASONE
     Dosage: 1 MILLIGRAM
     Route: 065
     Dates: start: 2020
  5. HYDROCORTISONE. [Suspect]
     Active Substance: HYDROCORTISONE
     Indication: PNEUMONITIS
     Dosage: 20 MILLIGRAM
     Route: 065
     Dates: start: 2020
  6. DEXAMETHASONE. [Suspect]
     Active Substance: DEXAMETHASONE
     Indication: STEROID THERAPY
     Dosage: UNK
     Route: 065
     Dates: start: 2020

REACTIONS (1)
  - Pneumocystis jirovecii pneumonia [Recovering/Resolving]
